FAERS Safety Report 6980407-9 (Version None)
Quarter: 2010Q3

REPORT INFORMATION
  Report Type: 
  Country: None (occurrence: None)
  Receive Date: 20100909
  Receipt Date: 20100825
  Transmission Date: 20110219
  Serious: Yes (Other)
  Sender: FDA-Public Use
  Company Number: 2010AP001842

PATIENT
  Age: 38 Year
  Sex: Female

DRUGS (11)
  1. OMEPRAZOLE [Suspect]
     Dosage: 20 MG; PO
     Route: 048
     Dates: start: 20090404, end: 20090827
  2. LANSOPRAZOLE [Suspect]
     Indication: DYSPEPSIA
     Dosage: 30 MG; PO
     Route: 048
     Dates: start: 20050201, end: 20090404
  3. CYCLIZINE (CYCLIZINE) [Concomitant]
  4. GABAPENTIN [Concomitant]
  5. MORPHINE [Concomitant]
  6. MORPHINE SULFATE INJ [Concomitant]
  7. PANCREATIN TRIPLE STRENGTH CAP [Concomitant]
  8. HYOSCINE HBR HYT [Concomitant]
  9. LANSOPRAZOLE [Concomitant]
  10. PANTOPRAZOLE SODIUM [Concomitant]
  11. RANITIDINE [Concomitant]

REACTIONS (4)
  - BLOOD GLUCOSE INCREASED [None]
  - BLOOD POTASSIUM DECREASED [None]
  - BLOOD SODIUM DECREASED [None]
  - HYPOMAGNESAEMIA [None]
